FAERS Safety Report 10004704 (Version 1)
Quarter: 2014Q1

REPORT INFORMATION
  Report Type: Spontaneous
  Country: PE (occurrence: PE)
  Receive Date: 20140312
  Receipt Date: 20140312
  Transmission Date: 20141002
  Serious: Yes (Other)
  Sender: FDA-Public Use
  Company Number: PE-GLAXOSMITHKLINE-A1062903A

PATIENT
  Sex: Female

DRUGS (1)
  1. AVAMYS [Suspect]
     Indication: PRODUCT USED FOR UNKNOWN INDICATION
     Route: 065

REACTIONS (3)
  - Optic atrophy [Unknown]
  - Intraocular pressure increased [Recovering/Resolving]
  - Visual acuity reduced [Unknown]
